FAERS Safety Report 10146858 (Version 1)
Quarter: 2014Q2

REPORT INFORMATION
  Report Type: Spontaneous
  Country: PL (occurrence: None)
  Receive Date: 20140429
  Receipt Date: 20140429
  Transmission Date: 20141212
  Serious: Yes (Death, Life-Threatening)
  Sender: FDA-Public Use
  Company Number: PL-2014-1180

PATIENT
  Age: 64 Year
  Sex: Male

DRUGS (2)
  1. NAVELBINE [Suspect]
     Indication: LUNG NEOPLASM MALIGNANT
     Route: 042
     Dates: start: 20140318, end: 20140320
  2. CISPLATIN (CISPLATIN) [Suspect]
     Indication: LUNG NEOPLASM MALIGNANT
     Dates: start: 20140318, end: 20140320

REACTIONS (1)
  - Leukopenia [None]
